FAERS Safety Report 6271987-X (Version None)
Quarter: 2009Q3

REPORT INFORMATION
  Report Type: 
  Country: None (occurrence: None)
  Receive Date: 20090713
  Receipt Date: 20090413
  Transmission Date: 20100115
  Serious: No
  Sender: FDA-Public Use
  Company Number: 2009BM000094

PATIENT
  Age: 4 Year
  Sex: Female
  Weight: 19.0511 kg

DRUGS (2)
  1. KUVAN [Suspect]
     Indication: PHENYLKETONURIA
     Dosage: 350 MG; QD; PO, 350 MG; QD; PO
     Route: 048
     Dates: start: 20090301, end: 20090403
  2. KUVAN [Suspect]
     Indication: PHENYLKETONURIA
     Dosage: 350 MG; QD; PO, 350 MG; QD; PO
     Route: 048
     Dates: start: 20090410

REACTIONS (1)
  - VOMITING [None]
